FAERS Safety Report 11145401 (Version 1)
Quarter: 2015Q2

REPORT INFORMATION
  Report Type: Report from Study
  Country: MX (occurrence: MX)
  Receive Date: 20150528
  Receipt Date: 20150528
  Transmission Date: 20150821
  Serious: Yes (Death, Other)
  Sender: FDA-Public Use
  Company Number: MX-JNJFOC-20150518615

PATIENT
  Age: 60 Year
  Sex: Male

DRUGS (2)
  1. XARELTO [Suspect]
     Active Substance: RIVAROXABAN
     Indication: CEREBROVASCULAR ACCIDENT PROPHYLAXIS
     Route: 048
     Dates: start: 20150302, end: 20150406
  2. XARELTO [Suspect]
     Active Substance: RIVAROXABAN
     Indication: ATRIAL FIBRILLATION
     Route: 048
     Dates: start: 20150302, end: 20150406

REACTIONS (1)
  - Renal failure [Fatal]

NARRATIVE: CASE EVENT DATE: 20150406
